FAERS Safety Report 6752806-1 (Version None)
Quarter: 2010Q2

REPORT INFORMATION
  Report Type: 
  Country: None (occurrence: None)
  Receive Date: 20100603
  Receipt Date: 20100519
  Transmission Date: 20101027
  Serious: Yes (Disabling)
  Sender: FDA-Public Use
  Company Number: GB-MYLANLABS-2010S1008925

PATIENT
  Age: 26 Year
  Sex: Male
  Weight: 80 kg

DRUGS (3)
  1. FEXOFENADINE [Suspect]
     Indication: ECZEMA
     Route: 048
     Dates: start: 20100504, end: 20100505
  2. PREDNISOLONE [Suspect]
     Indication: ECZEMA
     Route: 048
     Dates: start: 20100504, end: 20100505
  3. STEROIDS [Concomitant]
     Indication: DRUG USE FOR UNKNOWN INDICATION
     Route: 061

REACTIONS (1)
  - MYOPATHY [None]
